FAERS Safety Report 7405134-5 (Version None)
Quarter: 2011Q2

REPORT INFORMATION
  Report Type: 
  Country: None (occurrence: None)
  Receive Date: 20110404
  Receipt Date: 20110323
  Transmission Date: 20111010
  Serious: Yes (Other)
  Sender: FDA-Public Use
  Company Number: 2011SP006012

PATIENT
  Age: 26 Year
  Sex: Female
  Weight: 99.3377 kg

DRUGS (1)
  1. IMPLANON [Suspect]
     Indication: CONTRACEPTION
     Dosage: 1 DF; SBDE
     Route: 059
     Dates: start: 20101116, end: 20110216

REACTIONS (2)
  - MALAISE [None]
  - BLOOD GLUCOSE INCREASED [None]
